FAERS Safety Report 6203944-3 (Version None)
Quarter: 2009Q2

REPORT INFORMATION
  Report Type: 
  Country: None (occurrence: None)
  Receive Date: 20090527
  Receipt Date: 20090515
  Transmission Date: 20091009
  Serious: Yes (Hospitalization)
  Sender: FDA-Public Use
  Company Number: A0785983A

PATIENT
  Age: 54 Year
  Sex: Male
  Weight: 54.5 kg

DRUGS (6)
  1. AVANDIA [Suspect]
     Dosage: 8MG PER DAY
     Route: 048
     Dates: start: 20050221, end: 20070827
  2. METFORMIN HCL [Concomitant]
  3. GLIPIZIDE [Concomitant]
  4. LOVASTATIN [Concomitant]
  5. LISINOPRIL [Concomitant]
  6. NAPROXEN [Concomitant]

REACTIONS (3)
  - ACUTE CORONARY SYNDROME [None]
  - CEREBROVASCULAR ACCIDENT [None]
  - CORONARY ARTERY DISEASE [None]
